FAERS Safety Report 4705334-9 (Version None)
Quarter: 2005Q2

REPORT INFORMATION
  Report Type: 
  Country: None (occurrence: None)
  Receive Date: 20050628
  Receipt Date: 20050613
  Transmission Date: 20051028
  Serious: Yes (Other)
  Sender: FDA-Public Use
  Company Number: JP_050606829

PATIENT
  Age: 22 Year
  Sex: Female

DRUGS (4)
  1. ONCOVIN [Suspect]
     Indication: LYMPHOMA
  2. CYCLOPHOSPHAMIDE [Concomitant]
  3. ADRIAMYCIN (DOXORUBICIN /00330901/) [Concomitant]
  4. PREDNISONE [Concomitant]

REACTIONS (8)
  - BLOOD LACTATE DEHYDROGENASE INCREASED [None]
  - BONE MARROW TRANSPLANT [None]
  - BONE PAIN [None]
  - CONDITION AGGRAVATED [None]
  - DRUG EXPOSURE DURING PREGNANCY [None]
  - LYMPHOMA [None]
  - PNEUMOCYSTIS JIROVECI PNEUMONIA [None]
  - PREMATURE BABY [None]
